FAERS Safety Report 20518043 (Version 1)
Quarter: 2022Q1

REPORT INFORMATION
  Report Type: Spontaneous
  Country: US (occurrence: None)
  Receive Date: 20220224
  Receipt Date: 20220224
  Transmission Date: 20220423
  Serious: No
  Sender: FDA-Public Use
  Company Number: None

PATIENT
  Age: 78 Year
  Sex: Male

DRUGS (1)
  1. WARFARIN SODIUM [Suspect]
     Active Substance: WARFARIN SODIUM
     Indication: Atrial fibrillation
     Dates: start: 20200415, end: 20200417

REACTIONS (5)
  - Urinary retention [None]
  - International normalised ratio increased [None]
  - Haemoglobin decreased [None]
  - Haematocrit decreased [None]
  - Drug interaction [None]

NARRATIVE: CASE EVENT DATE: 20200413
